FAERS Safety Report 7720480-3 (Version None)
Quarter: 2011Q3

REPORT INFORMATION
  Report Type: 
  Country: None (occurrence: None)
  Receive Date: 20110831
  Receipt Date: 20110519
  Transmission Date: 20111222
  Serious: No
  Sender: FDA-Public Use
  Company Number: US-KINGPHARMUSA00001-K201100632

PATIENT
  Sex: Female
  Weight: 59.864 kg

DRUGS (2)
  1. ESTRADIOL [Concomitant]
     Dosage: 2 MG, QD
     Route: 048
  2. PENICILLIN G PROCAINE [Suspect]
     Dosage: UNK

REACTIONS (1)
  - DRUG HYPERSENSITIVITY [None]
